FAERS Safety Report 14057515 (Version 5)
Quarter: 2017Q4

REPORT INFORMATION
  Report Type: Spontaneous
  Country: CA (occurrence: CA)
  Receive Date: 20171006
  Receipt Date: 20171121
  Transmission Date: 20180321
  Serious: Yes (Other)
  Sender: FDA-Public Use
  Company Number: CA-REGENERON PHARMACEUTICALS, INC.-2017-23226

PATIENT

DRUGS (8)
  1. EYLEA [Suspect]
     Active Substance: AFLIBERCEPT
     Dosage: Q6-7 WEEKS, OU, LAST DOSE PRIOR TO EVENT
     Route: 031
     Dates: start: 20170915
  2. EYLEA [Suspect]
     Active Substance: AFLIBERCEPT
     Indication: NEOVASCULAR AGE-RELATED MACULAR DEGENERATION
     Dosage: Q6-7 WEEKS, OU
     Route: 031
     Dates: start: 20170316
  3. EYLEA [Suspect]
     Active Substance: AFLIBERCEPT
     Dosage: Q6-7 WEEKS, OU
     Route: 031
     Dates: start: 20170523
  4. EYLEA [Suspect]
     Active Substance: AFLIBERCEPT
     Dosage: Q6-7 WEEKS, OU, LAST DOSE PRIOR TO EVENT
     Route: 031
     Dates: start: 20170915
  5. IODINE. [Concomitant]
     Active Substance: IODINE
     Indication: PRODUCT USED FOR UNKNOWN INDICATION
     Dosage: PRE=OP
  6. EYLEA [Suspect]
     Active Substance: AFLIBERCEPT
     Dosage: Q6-7 WEEKS, OU
     Route: 031
     Dates: start: 20170418
  7. EYLEA [Suspect]
     Active Substance: AFLIBERCEPT
     Dosage: Q6-7 WEEKS, OU
     Route: 031
     Dates: start: 20170629
  8. EYLEA [Suspect]
     Active Substance: AFLIBERCEPT
     Dosage: Q6-7 WEEKS, OU
     Route: 031
     Dates: start: 20170804

REACTIONS (2)
  - Inadequate aseptic technique in use of product [Unknown]
  - Endophthalmitis [Recovering/Resolving]
